FAERS Safety Report 6793195-6 (Version None)
Quarter: 2010Q2

REPORT INFORMATION
  Report Type: 
  Country: None (occurrence: None)
  Receive Date: 20100624
  Receipt Date: 20090904
  Transmission Date: 20101027
  Serious: Yes (Other)
  Sender: FDA-Public Use
  Company Number: US-MYLANLABS-2009S1013410

PATIENT
  Age: 22 Year
  Sex: Female
  Weight: 88.45 kg

DRUGS (11)
  1. CLOZAPINE [Suspect]
     Indication: SCHIZOAFFECTIVE DISORDER
     Route: 048
     Dates: start: 20090301, end: 20090723
  2. CLOZAPINE [Suspect]
     Route: 048
     Dates: start: 20090301, end: 20090723
  3. ASPIRIN [Concomitant]
  4. STRATTERA [Concomitant]
  5. DOCUSATE [Concomitant]
  6. TRICOR [Concomitant]
  7. HALDOL [Concomitant]
     Dosage: AND 5MG PRN
  8. NIACIN [Concomitant]
  9. PRILOSEC [Concomitant]
  10. TRILEPTAL [Concomitant]
  11. MIRALAX [Concomitant]

REACTIONS (2)
  - GRANULOCYTOPENIA [None]
  - LEUKOPENIA [None]
